FAERS Safety Report 10360280 (Version 1)
Quarter: 2014Q3

REPORT INFORMATION
  Report Type: Spontaneous
  Country: US (occurrence: None)
  Receive Date: 20140731
  Receipt Date: 20140731
  Transmission Date: 20150326
  Serious: Yes (Hospitalization)
  Sender: FDA-Public Use
  Company Number: None

PATIENT
  Age: 56 Year
  Sex: Female
  Weight: 74.5 kg

DRUGS (10)
  1. WELLBUTRIN [Concomitant]
     Active Substance: BUPROPION HYDROCHLORIDE
  2. SOFOSBUVIR [Suspect]
     Active Substance: SOFOSBUVIR
     Indication: HEPATITIS C
     Route: 048
     Dates: start: 20140308
  3. OMEPRAZOLE. [Concomitant]
     Active Substance: OMEPRAZOLE
  4. SYNTHROID [Concomitant]
     Active Substance: LEVOTHYROXINE SODIUM
  5. SYMBICORT [Concomitant]
     Active Substance: BUDESONIDE\FORMOTEROL FUMARATE DIHYDRATE
  6. ALBUTEROL. [Concomitant]
     Active Substance: ALBUTEROL
  7. LITHIUM CARBONATE. [Concomitant]
     Active Substance: LITHIUM CARBONATE
  8. CALCIUM/VITAMIN D [Concomitant]
     Active Substance: CALCIUM\VITAMIN D
  9. LACTULOSE. [Concomitant]
     Active Substance: LACTULOSE
  10. RIBAVIRIN. [Suspect]
     Active Substance: RIBAVIRIN
     Indication: HEPATITIS C
     Route: 048
     Dates: start: 20140308

REACTIONS (3)
  - Vomiting [None]
  - Gastroenteritis viral [None]
  - Staphylococcal skin infection [None]

NARRATIVE: CASE EVENT DATE: 20140422
